FAERS Safety Report 10220775 (Version 1)
Quarter: 2014Q2

REPORT INFORMATION
  Report Type: Spontaneous
  Country: US (occurrence: US)
  Receive Date: 20140606
  Receipt Date: 20140606
  Transmission Date: 20141212
  Serious: Yes (Other)
  Sender: FDA-Public Use
  Company Number: US-ASTRAZENECA-2014SE38339

PATIENT
  Age: 61 Year
  Sex: Male

DRUGS (6)
  1. BRILINTA [Suspect]
     Indication: ISCHAEMIC HEART DISEASE PROPHYLAXIS
     Route: 048
  2. INTEGRILIN [Concomitant]
  3. ANGIOMAX [Concomitant]
  4. ACE INHIBITOR [Concomitant]
  5. BETA BLOCKER [Concomitant]
  6. OTHER PRODUCTS [Concomitant]

REACTIONS (2)
  - Stevens-Johnson syndrome [Recovered/Resolved]
  - Rash generalised [Recovered/Resolved]
